FAERS Safety Report 8250189-1 (Version None)
Quarter: 2012Q2

REPORT INFORMATION
  Report Type: 
  Country: None (occurrence: None)
  Receive Date: 20120402
  Receipt Date: 20120327
  Transmission Date: 20120825
  Serious: Yes (Death)
  Sender: FDA-Public Use
  Company Number: JP-PFIZER INC-2012066685

PATIENT
  Age: 43 Year
  Sex: Male
  Weight: 41.8 kg

DRUGS (14)
  1. MUCOSTA [Concomitant]
     Indication: PROPHYLAXIS
     Dosage: UNK
     Route: 048
  2. ALDACTONE [Concomitant]
     Dosage: UNK
     Route: 048
  3. SILDENAFIL CITRATE [Suspect]
     Indication: PULMONARY HYPERTENSION
     Dosage: 10 MG, 4X/DAY
     Route: 048
     Dates: start: 20080822, end: 20081024
  4. GLEEVEC [Concomitant]
     Indication: PULMONARY HYPERTENSION
     Dosage: UNK
     Route: 048
     Dates: start: 20080822
  5. ASPARA K [Concomitant]
     Dosage: UNK
     Route: 048
     Dates: start: 20080825
  6. BERASUS [Concomitant]
     Indication: PULMONARY HYPERTENSION
     Dosage: UNK
     Route: 048
     Dates: start: 20081019
  7. LANSOPRAZOLE [Concomitant]
     Indication: PROPHYLAXIS
     Dosage: UNK
     Route: 048
  8. URSO 250 [Concomitant]
     Indication: PROPHYLAXIS
     Dosage: UNK
     Route: 048
     Dates: start: 20080913
  9. SILDENAFIL CITRATE [Suspect]
     Indication: PULMONARY VENO-OCCLUSIVE DISEASE
     Dosage: 20 MG, 2X/DAY
     Route: 048
     Dates: start: 20080821, end: 20080821
  10. SILDENAFIL CITRATE [Suspect]
     Dosage: 20 MG, 3X/DAY
     Route: 048
     Dates: start: 20081025
  11. TRICHLORMETHIAZIDE [Concomitant]
     Dosage: UNK
     Route: 048
  12. TRACLEER [Concomitant]
     Indication: PULMONARY HYPERTENSION
     Dosage: UNK
     Route: 048
  13. ALLOPURINOL [Concomitant]
     Dosage: UNK
     Route: 048
     Dates: start: 20080826
  14. ACARDI [Concomitant]
     Dosage: UNK
     Route: 048
     Dates: start: 20080828

REACTIONS (1)
  - RIGHT VENTRICULAR FAILURE [None]
